FAERS Safety Report 8590841-1 (Version None)
Quarter: 2012Q3

REPORT INFORMATION
  Report Type: 
  Country: None (occurrence: None)
  Receive Date: 20120813
  Receipt Date: 20120807
  Transmission Date: 20120928
  Serious: Yes (Other)
  Sender: FDA-Public Use
  Company Number: CA-ROCHE-GNE290971

PATIENT
  Sex: Female
  Weight: 138.47 kg

DRUGS (2)
  1. XOLAIR [Suspect]
     Indication: ASTHMA
     Dosage: 300 MG,3/WEEK
     Route: 058
     Dates: start: 20080129
  2. XOLAIR [Suspect]
     Dosage: 300 MG, Q2W
     Route: 058
     Dates: start: 20090817

REACTIONS (17)
  - CONSTIPATION [None]
  - FIBROMYALGIA [None]
  - CHEST DISCOMFORT [None]
  - WOUND [None]
  - HYPERSENSITIVITY [None]
  - ARTERIAL OCCLUSIVE DISEASE [None]
  - THROAT IRRITATION [None]
  - BLOOD PRESSURE DECREASED [None]
  - HEART RATE INCREASED [None]
  - SUFFOCATION FEELING [None]
  - DYSPHONIA [None]
  - SLEEP APNOEA SYNDROME [None]
  - RESPIRATORY TRACT CONGESTION [None]
  - CELLULITIS [None]
  - DYSPNOEA [None]
  - ASTHMA [None]
  - LOWER RESPIRATORY TRACT INFECTION [None]
